FAERS Safety Report 7364094-6 (Version None)
Quarter: 2011Q1

REPORT INFORMATION
  Report Type: 
  Country: None (occurrence: None)
  Receive Date: 20110321
  Receipt Date: 20110310
  Transmission Date: 20110831
  Serious: Yes (Other)
  Sender: FDA-Public Use
  Company Number: PHHY2010BR55299

PATIENT
  Sex: Female

DRUGS (3)
  1. BEROTEC [Concomitant]
  2. ATROVENT [Concomitant]
  3. FORASEQ [Suspect]
     Indication: BRONCHITIS
     Dosage: UNK

REACTIONS (3)
  - EPILEPSY [None]
  - BRONCHITIS [None]
  - PNEUMONIA [None]
